FAERS Safety Report 9097364 (Version 2)
Quarter: 2020Q4

REPORT INFORMATION
  Report Type: Spontaneous
  Country: US (occurrence: US)
  Receive Date: 20130212
  Receipt Date: 20201117
  Transmission Date: 20210114
  Serious: Yes (Other)
  Sender: FDA-Public Use
  Company Number: US-PFIZER INC-2013051472

PATIENT
  Age: 61 Year
  Sex: Female
  Weight: 58.97 kg

DRUGS (2)
  1. ARTHROTEC [Suspect]
     Active Substance: DICLOFENAC SODIUM\MISOPROSTOL
     Dosage: 140 MG, 1X/DAY (70 MG, 2 TABLETS A DAY)
     Route: 048
  2. ARTHROTEC [Suspect]
     Active Substance: DICLOFENAC SODIUM\MISOPROSTOL
     Indication: PSORIATIC ARTHROPATHY
     Dosage: 1 TABLET, 2X/DAY
     Route: 048

REACTIONS (5)
  - Psoriasis [Unknown]
  - Off label use [Unknown]
  - Rotator cuff syndrome [Unknown]
  - Product use in unapproved indication [Unknown]
  - Arthropathy [Unknown]

NARRATIVE: CASE EVENT DATE: 200210
